FAERS Safety Report 5106853-6 (Version None)
Quarter: 2006Q3

REPORT INFORMATION
  Report Type: 
  Country: None (occurrence: None)
  Receive Date: 20060912
  Receipt Date: 20060830
  Transmission Date: 20061208
  Serious: Yes (Disabling)
  Sender: FDA-Public Use
  Company Number: TCI2006A03676

PATIENT
  Age: 76 Year
  Sex: Male

DRUGS (3)
  1. ACTOS [Suspect]
     Indication: DIABETES MELLITUS
     Dosage: 15 MG (15 MG, 1 D)
     Route: 048
     Dates: start: 20060301, end: 20060801
  2. ASPIRIN [Concomitant]
  3. AMARYL [Concomitant]

REACTIONS (1)
  - POSTRENAL FAILURE [None]
